FAERS Safety Report 6204943-8 (Version None)
Quarter: 2009Q2

REPORT INFORMATION
  Report Type: 
  Country: None (occurrence: None)
  Receive Date: 20090526
  Receipt Date: 20090513
  Transmission Date: 20091009
  Serious: Yes (Hospitalization, Other)
  Sender: FDA-Public Use
  Company Number: MSTR-NO-0802S-0005

PATIENT
  Age: 66 Year
  Sex: Male
  Weight: 63 kg

DRUGS (1)
  1. METASTRON [Suspect]
     Indication: METASTATIC PAIN
     Dosage: SINGLE DOSE, I.V.
     Route: 042
     Dates: start: 20071211, end: 20071211

REACTIONS (14)
  - ANAEMIA [None]
  - ANOREXIA [None]
  - DEMENTIA [None]
  - HALLUCINATION [None]
  - HYDRONEPHROSIS [None]
  - HYPOALBUMINAEMIA [None]
  - NEPHROSTOMY [None]
  - OEDEMA [None]
  - PRURITUS [None]
  - PYREXIA [None]
  - RENAL IMPAIRMENT [None]
  - STOMATITIS [None]
  - URETERAL STENT INSERTION [None]
  - WHITE BLOOD CELL COUNT DECREASED [None]
